FAERS Safety Report 4407372-2 (Version None)
Quarter: 2004Q3

REPORT INFORMATION
  Report Type: 
  Country: None (occurrence: None)
  Receive Date: 20040721
  Receipt Date: 20040706
  Transmission Date: 20050211
  Serious: Yes (Hospitalization, Other)
  Sender: FDA-Public Use
  Company Number: 04-259-0596

PATIENT
  Sex: Female

DRUGS (1)
  1. ETOPOSIDE [Suspect]
     Dates: start: 20040504

REACTIONS (4)
  - ESCHERICHIA INFECTION [None]
  - FEBRILE NEUTROPENIA [None]
  - LACRIMAL DISORDER [None]
  - PERIANAL ABSCESS [None]
